FAERS Safety Report 12487226 (Version 2)
Quarter: 2016Q3

REPORT INFORMATION
  Report Type: Report from Study
  Country: US (occurrence: US)
  Receive Date: 20160622
  Receipt Date: 20160725
  Transmission Date: 20161109
  Serious: No
  Sender: FDA-Public Use
  Company Number: PHEH2016US015122

PATIENT
  Sex: Female

DRUGS (1)
  1. EXTAVIA [Suspect]
     Active Substance: INTERFERON BETA-1B
     Indication: MULTIPLE SCLEROSIS
     Dosage: 0.75 ML, QOD
     Route: 058
     Dates: start: 20160527

REACTIONS (2)
  - Injection site erythema [Unknown]
  - Injection site bruising [Unknown]
